FAERS Safety Report 8264309-6 (Version None)
Quarter: 2012Q2

REPORT INFORMATION
  Report Type: 
  Country: None (occurrence: None)
  Receive Date: 20120406
  Receipt Date: 20120328
  Transmission Date: 20120825
  Serious: Yes (Other)
  Sender: FDA-Public Use
  Company Number: US-JNJFOC-20120400245

PATIENT
  Sex: Female
  Weight: 88 kg

DRUGS (10)
  1. CRESTOR [Concomitant]
     Indication: BLOOD CHOLESTEROL
     Route: 065
  2. REMICADE [Suspect]
     Indication: PSORIASIS
     Route: 042
     Dates: start: 20090101
  3. REMICADE [Suspect]
     Indication: PSORIATIC ARTHROPATHY
     Route: 042
     Dates: start: 20090101
  4. EFFEXOR [Concomitant]
     Indication: DEPRESSION
     Route: 065
  5. TRICOR [Concomitant]
     Indication: BLOOD CHOLESTEROL
     Route: 065
  6. NOVOLOG [Concomitant]
     Indication: DIABETES MELLITUS
     Route: 065
  7. AMBIEN [Concomitant]
     Indication: SLEEP DISORDER
     Route: 065
  8. PLAVIX [Concomitant]
     Indication: CARDIAC DISORDER
     Route: 065
  9. ASPIRIN [Concomitant]
     Indication: CARDIAC DISORDER
     Route: 065
  10. TOPIRAMATE [Concomitant]
     Indication: DEPRESSION
     Route: 065

REACTIONS (3)
  - LENTIGO [None]
  - ALOPECIA [None]
  - CORONARY ARTERY DISEASE [None]
